FAERS Safety Report 5688547-1 (Version None)
Quarter: 2008Q1

REPORT INFORMATION
  Report Type: 
  Country: None (occurrence: None)
  Receive Date: 20080331
  Receipt Date: 20080319
  Transmission Date: 20080703
  Serious: Yes (Death)
  Sender: FDA-Public Use
  Company Number: GB-TEVA-169103ISR

PATIENT
  Age: 81 Year
  Sex: Female

DRUGS (3)
  1. PREDNISOLONE [Suspect]
  2. PREDNISOLONE [Suspect]
  3. AZATHIOPRINE [Suspect]

REACTIONS (2)
  - HODGKIN'S DISEASE [None]
  - PNEUMOCYSTIS JIROVECI PNEUMONIA [None]
